FAERS Safety Report 23290597 (Version 1)
Quarter: 2023Q4

REPORT INFORMATION
  Report Type: Spontaneous
  Country: IT (occurrence: None)
  Receive Date: 20231213
  Receipt Date: 20231213
  Transmission Date: 20240109
  Serious: Yes (Death, Hospitalization)
  Sender: FDA-Public Use
  Company Number: IT-ROCHE-3413413

PATIENT
  Age: 63 Year
  Sex: Female
  Weight: 71 kg

DRUGS (15)
  1. POLATUZUMAB VEDOTIN [Suspect]
     Active Substance: POLATUZUMAB VEDOTIN
     Indication: Diffuse large B-cell lymphoma
     Dosage: TWO CYCLES POLABR ON 12-13 JULY 2023 AND ON 3-4 AUGUST 2023 RESPECTIVELY
     Route: 065
     Dates: start: 20230712
  2. BENDAMUSTINE [Suspect]
     Active Substance: BENDAMUSTINE
     Indication: Diffuse large B-cell lymphoma
     Dosage: TWO CYCLES POLABR ON 12-13 JULY 2023 AND ON 3-4 AUGUST 2023 RESPECTIVELY
     Route: 065
     Dates: start: 20230712
  3. RITUXIMAB [Suspect]
     Active Substance: RITUXIMAB
     Indication: Diffuse large B-cell lymphoma
     Dosage: TWO CYCLES POLABR ON 12-13 JULY 2023 AND ON 3-4 AUGUST 2023 RESPECTIVELY
     Route: 065
     Dates: start: 20230712
  4. NEXIUM [Concomitant]
     Active Substance: ESOMEPRAZOLE MAGNESIUM
  5. ATORVASTATIN [Concomitant]
     Active Substance: ATORVASTATIN
  6. BACTRIM [Concomitant]
     Active Substance: SULFAMETHOXAZOLE\TRIMETHOPRIM
     Dosage: 160+800 MG
  7. OLMESARTAN MEDOXOMIL [Concomitant]
     Active Substance: OLMESARTAN MEDOXOMIL
  8. NORVASC [Concomitant]
     Active Substance: AMLODIPINE BESYLATE
  9. BISOPROLOL [Concomitant]
     Active Substance: BISOPROLOL\BISOPROLOL FUMARATE
     Dosage: 1.25
  10. LORAZEPAM [Concomitant]
     Active Substance: LORAZEPAM
  11. GLUCOPHAGE [Concomitant]
     Active Substance: METFORMIN HYDROCHLORIDE
  12. GLUCOPHAGE [Concomitant]
     Active Substance: METFORMIN HYDROCHLORIDE
  13. REPAGLINIDE [Concomitant]
     Active Substance: REPAGLINIDE
     Dosage: 0.5
  14. ACYCLOVIR [Concomitant]
     Active Substance: ACYCLOVIR
  15. ERYTHROPOIETIN [Concomitant]
     Active Substance: ERYTHROPOIETIN
     Dosage: 40 U

REACTIONS (5)
  - Disease progression [Fatal]
  - Blood lactate dehydrogenase increased [Unknown]
  - Vascular device infection [Unknown]
  - Lymphoedema [Unknown]
  - SARS-CoV-2 test positive [Unknown]

NARRATIVE: CASE EVENT DATE: 20230801
